FAERS Safety Report 17579648 (Version 1)
Quarter: 2020Q1

REPORT INFORMATION
  Report Type: Spontaneous
  Country: CA (occurrence: CA)
  Receive Date: 20200217
  Receipt Date: 20200217
  Transmission Date: 20200409
  Serious: Yes (Hospitalization)
  Sender: FDA-Public Use
  Company Number: None

PATIENT
  Sex: Female

DRUGS (3)
  1. HERBAL MUSCLE MASSAGE GEL ARBONNE ESSENTIALS [Suspect]
     Active Substance: CAPSAICIN\EUCALYPTUS OIL\METHYL SALICYLATE\RACEMENTHOL
     Indication: MYALGIA
     Route: 061
     Dates: start: 20191019, end: 20191019
  2. HERBAL MUSCLE MASSAGE GEL ARBONNE ESSENTIALS [Suspect]
     Active Substance: CAPSAICIN\EUCALYPTUS OIL\METHYL SALICYLATE\RACEMENTHOL
     Indication: PAIN
     Route: 061
     Dates: start: 20191019, end: 20191019
  3. HERBAL MUSCLE MASSAGE GEL ARBONNE ESSENTIALS [Suspect]
     Active Substance: CAPSAICIN\EUCALYPTUS OIL\METHYL SALICYLATE\RACEMENTHOL
     Indication: ARTHRALGIA
     Route: 061
     Dates: start: 20191019, end: 20191019

REACTIONS (2)
  - Burns third degree [None]
  - Skin graft [None]

NARRATIVE: CASE EVENT DATE: 20191019
